FAERS Safety Report 4627530-1 (Version None)
Quarter: 2005Q2

REPORT INFORMATION
  Report Type: 
  Country: None (occurrence: None)
  Receive Date: 20050405
  Receipt Date: 20050323
  Transmission Date: 20051028
  Serious: Yes (Death)
  Sender: FDA-Public Use
  Company Number: US014951

PATIENT

DRUGS (1)
  1. PROVIGIL [Suspect]

REACTIONS (1)
  - ARRHYTHMIA [None]
